FAERS Safety Report 7183210-2 (Version None)
Quarter: 2010Q4

REPORT INFORMATION
  Report Type: 
  Country: None (occurrence: None)
  Receive Date: 20101222
  Receipt Date: 20091202
  Transmission Date: 20110411
  Serious: No
  Sender: FDA-Public Use
  Company Number: A0834155A

PATIENT
  Sex: Female

DRUGS (1)
  1. FLOVENT [Suspect]
     Dosage: 110U UNKNOWN

REACTIONS (1)
  - BRONCHITIS [None]
